FAERS Safety Report 23158947 (Version 1)
Quarter: 2023Q4

REPORT INFORMATION
  Report Type: Spontaneous
  Country: CN (occurrence: None)
  Receive Date: 20231108
  Receipt Date: 20231108
  Transmission Date: 20240110
  Serious: Yes (Other)
  Sender: FDA-Public Use
  Company Number: 2023A251813

PATIENT
  Age: 21335 Day
  Sex: Female
  Weight: 56 kg

DRUGS (4)
  1. TAGRISSO [Suspect]
     Active Substance: OSIMERTINIB
     Indication: Targeted cancer therapy
     Route: 048
  2. TAGRISSO [Suspect]
     Active Substance: OSIMERTINIB
     Indication: Therapeutic procedure
     Route: 048
  3. TAGRISSO [Suspect]
     Active Substance: OSIMERTINIB
     Indication: Targeted cancer therapy
     Route: 048
     Dates: start: 20230705, end: 20230905
  4. TAGRISSO [Suspect]
     Active Substance: OSIMERTINIB
     Indication: Therapeutic procedure
     Route: 048
     Dates: start: 20230705, end: 20230905

REACTIONS (2)
  - Myelosuppression [Recovering/Resolving]
  - Metastases to central nervous system [Unknown]

NARRATIVE: CASE EVENT DATE: 20230903
